FAERS Safety Report 11428169 (Version 1)
Quarter: 2015Q3

REPORT INFORMATION
  Report Type: Spontaneous
  Country: US (occurrence: None)
  Receive Date: 20150827
  Receipt Date: 20150827
  Transmission Date: 20151125
  Serious: No
  Sender: FDA-Public Use
  Company Number: None

PATIENT
  Age: 57 Year
  Sex: Female
  Weight: 72.58 kg

DRUGS (3)
  1. SPIRONOLACTONE. [Concomitant]
     Active Substance: SPIRONOLACTONE
  2. DOXYCYCLINE. [Concomitant]
     Active Substance: DOXYCYCLINE
  3. DOXYCYCLINE. [Suspect]
     Active Substance: DOXYCYCLINE
     Indication: ACNE
     Dosage: 1 PILL
     Route: 048
     Dates: start: 20150810, end: 20150821

REACTIONS (9)
  - Gait disturbance [None]
  - Product quality issue [None]
  - Hypersomnia [None]
  - Somnolence [None]
  - Irritability [None]
  - Depression [None]
  - Dizziness [None]
  - Job dissatisfaction [None]
  - Drug dispensing error [None]

NARRATIVE: CASE EVENT DATE: 20150810
